FAERS Safety Report 18565116 (Version 1)
Quarter: 2020Q4

REPORT INFORMATION
  Report Type: Report from Study
  Country: DE (occurrence: DE)
  Receive Date: 20201201
  Receipt Date: 20201201
  Transmission Date: 20210114
  Serious: Yes (Hospitalization)
  Sender: FDA-Public Use
  Company Number: DE-TAKEDA-2020TUS052994

PATIENT
  Age: 15 Year
  Sex: Female

DRUGS (1)
  1. HUMAN IMMUNOGLOBULIN; HYALURONIDASE [Suspect]
     Active Substance: HUMAN IMMUNOGLOBULIN G\HYALURONIDASE RECOMBINANT HUMAN
     Indication: DERMATOMYOSITIS
     Dosage: 40 GRAM, 2/MONTH
     Route: 058
     Dates: start: 20201030, end: 20201030

REACTIONS (1)
  - Disease complication [Recovered/Resolved]

NARRATIVE: CASE EVENT DATE: 20201109
